FAERS Safety Report 6777941-3 (Version None)
Quarter: 2010Q2

REPORT INFORMATION
  Report Type: 
  Country: None (occurrence: None)
  Receive Date: 20100618
  Receipt Date: 20100608
  Transmission Date: 20101027
  Serious: Yes (Hospitalization)
  Sender: FDA-Public Use
  Company Number: BR-BIOGENIDEC-2010BI019524

PATIENT
  Age: 25 Year
  Sex: Female

DRUGS (1)
  1. AVONEX [Suspect]
     Indication: MULTIPLE SCLEROSIS
     Dosage: DOSE UNIT:30
     Route: 030
     Dates: start: 20100301, end: 20100501

REACTIONS (2)
  - CHOLECYSTECTOMY [None]
  - MULTIPLE SCLEROSIS RELAPSE [None]
